FAERS Safety Report 9452451 (Version 4)
Quarter: 2013Q4

REPORT INFORMATION
  Report Type: Spontaneous
  Country: US (occurrence: US)
  Receive Date: 20130812
  Receipt Date: 20131018
  Transmission Date: 20140711
  Serious: Yes (Other)
  Sender: FDA-Public Use
  Company Number: US-JNJFOC-20130801665

PATIENT
  Age: 69 Year
  Sex: Female
  Weight: 58.79 kg

DRUGS (4)
  1. XARELTO [Suspect]
     Indication: DEEP VEIN THROMBOSIS
     Route: 048
     Dates: end: 20130714
  2. XARELTO [Suspect]
     Indication: DEEP VEIN THROMBOSIS
     Route: 048
     Dates: start: 20130602
  3. VALIUM [Concomitant]
     Route: 065
  4. ROBITUSSIN W/CODEINE [Concomitant]
     Route: 065

REACTIONS (1)
  - Trousseau^s syndrome [Recovered/Resolved]
